FAERS Safety Report 12584379 (Version 1)
Quarter: 2016Q3

REPORT INFORMATION
  Report Type: Spontaneous
  Country: DK (occurrence: DK)
  Receive Date: 20160722
  Receipt Date: 20160722
  Transmission Date: 20161109
  Serious: Yes (Hospitalization, Other)
  Sender: FDA-Public Use
  Company Number: DK-GLAXOSMITHKLINE-DK2016103469

PATIENT
  Age: 56 Year
  Sex: Female

DRUGS (5)
  1. OXAPAX [Concomitant]
     Active Substance: OXAZEPAM
     Indication: PRODUCT USED FOR UNKNOWN INDICATION
     Dosage: UNK
  2. VENLAFAXINE [Concomitant]
     Active Substance: VENLAFAXINE HYDROCHLORIDE
     Indication: DEPRESSION
     Dosage: UNK
  3. IMOCLONE [Concomitant]
     Active Substance: ZOPICLONE
     Indication: PRODUCT USED FOR UNKNOWN INDICATION
     Dosage: UNK
  4. QUETIAPINE. [Concomitant]
     Active Substance: QUETIAPINE
     Indication: PRODUCT USED FOR UNKNOWN INDICATION
     Dosage: UNK
  5. LAMICTAL [Suspect]
     Active Substance: LAMOTRIGINE
     Indication: EPILEPSY
     Dosage: 100 MG, QD
     Route: 048
     Dates: start: 20160522, end: 20160524

REACTIONS (8)
  - Stevens-Johnson syndrome [Recovering/Resolving]
  - Mucosal ulceration [Recovering/Resolving]
  - Pain [Recovering/Resolving]
  - Lip ulceration [Recovering/Resolving]
  - Lip erosion [Recovering/Resolving]
  - Oral mucosa erosion [Recovering/Resolving]
  - Mouth swelling [Recovering/Resolving]
  - Nasal mucosal erosion [Recovering/Resolving]

NARRATIVE: CASE EVENT DATE: 201606
